FAERS Safety Report 8043839 (Version 2)
Quarter: 2020Q2

REPORT INFORMATION
  Report Type: Spontaneous
  Country: US (occurrence: US)
  Receive Date: 20110719
  Receipt Date: 20200622
  Transmission Date: 20200714
  Serious: No
  Sender: FDA-Public Use
  Company Number: US-PFIZER INC-2011160124

PATIENT
  Sex: Female

DRUGS (5)
  1. KEFLEX [Suspect]
     Active Substance: CEPHALEXIN
     Dosage: 500 MG, 3X/DAY (EVERY 8 HOURS)
     Route: 048
  2. CLEOCIN [Suspect]
     Active Substance: CLINDAMYCIN PHOSPHATE
     Dosage: TWO TEASPOONS, 4X/DAY (EVERY 6 HOURS)
     Dates: end: 2011
  3. CLEOCIN [Suspect]
     Active Substance: CLINDAMYCIN PHOSPHATE
     Indication: TOOTH INFECTION
     Dosage: UNK, 4X/DAY (EVERY 6 HOURS)
     Dates: end: 2011
  4. AMOXICILLIN. [Suspect]
     Active Substance: AMOXICILLIN
     Dosage: UNK
  5. IBUPROFEN. [Concomitant]
     Active Substance: IBUPROFEN
     Indication: TOOTHACHE
     Dosage: 200 MG, DAILY
     Route: 048

REACTIONS (2)
  - Urticaria [Recovered/Resolved]
  - Diarrhoea [Recovered/Resolved]
